FAERS Safety Report 15946384 (Version 1)
Quarter: 2019Q1

REPORT INFORMATION
  Report Type: Spontaneous
  Country: US (occurrence: US)
  Receive Date: 20190211
  Receipt Date: 20190211
  Transmission Date: 20190417
  Serious: Yes (Other)
  Sender: FDA-Public Use
  Company Number: US-UNICHEM PHARMACEUTICALS (USA) INC-UCM201902-000053

PATIENT
  Age: 38 Year
  Sex: Female

DRUGS (3)
  1. LEVOTHYROXINE. [Concomitant]
     Active Substance: LEVOTHYROXINE
  2. TOPIRAMATE. [Suspect]
     Active Substance: TOPIRAMATE
  3. AMILODIPINE [Concomitant]

REACTIONS (2)
  - Visual impairment [Recovering/Resolving]
  - Retinal detachment [Recovered/Resolved]
